FAERS Safety Report 23083265 (Version 1)
Quarter: 2023Q4

REPORT INFORMATION
  Report Type: Spontaneous
  Country: US (occurrence: None)
  Receive Date: 20231017
  Receipt Date: 20231017
  Transmission Date: 20240110
  Serious: Yes (Hospitalization)
  Sender: FDA-Public Use
  Company Number: None

PATIENT
  Age: 51 Year
  Sex: Female

DRUGS (1)
  1. PHENOBARBITAL [Suspect]
     Active Substance: PHENOBARBITAL
     Dates: start: 20221106, end: 20221109

REACTIONS (2)
  - Hepatic enzyme abnormal [None]
  - Liver function test increased [None]

NARRATIVE: CASE EVENT DATE: 20221110
